FAERS Safety Report 5906762-6 (Version None)
Quarter: 2008Q3

REPORT INFORMATION
  Report Type: 
  Country: None (occurrence: None)
  Receive Date: 20080930
  Receipt Date: 20080915
  Transmission Date: 20090109
  Serious: Yes (Other)
  Sender: FDA-Public Use
  Company Number: 2008S1016758

PATIENT
  Age: 14 Year
  Sex: Female

DRUGS (1)
  1. DOXYCYCLINE [Suspect]
     Indication: ACNE
     Dates: start: 20080418, end: 20080707

REACTIONS (1)
  - BLOOD BILIRUBIN INCREASED [None]
